FAERS Safety Report 5104649-2 (Version None)
Quarter: 2006Q3

REPORT INFORMATION
  Report Type: 
  Country: None (occurrence: None)
  Receive Date: 20060912
  Receipt Date: 20060912
  Transmission Date: 20061208
  Serious: No
  Sender: FDA-Public Use
  Company Number: None

PATIENT
  Age: 71 Year
  Sex: Male
  Weight: 101.6057 kg

DRUGS (2)
  1. BYETTA [Suspect]
     Indication: DIABETES MELLITUS INADEQUATE CONTROL
     Dosage: 10 MCG BID SQ
     Route: 058
     Dates: start: 20060904, end: 20060908
  2. BYETTA [Suspect]
     Indication: DIABETES MELLITUS NON-INSULIN-DEPENDENT
     Dosage: 10 MCG BID SQ
     Route: 058
     Dates: start: 20060904, end: 20060908

REACTIONS (2)
  - HICCUPS [None]
  - NAUSEA [None]
